FAERS Safety Report 7592058-6 (Version None)
Quarter: 2011Q3

REPORT INFORMATION
  Report Type: 
  Country: None (occurrence: None)
  Receive Date: 20110705
  Receipt Date: 20110705
  Transmission Date: 20111222
  Serious: No
  Sender: FDA-Public Use
  Company Number: None

PATIENT
  Sex: Male

DRUGS (1)
  1. COPAXONE [Suspect]
     Dosage: 20MG DAILY SUBQ
     Route: 058
     Dates: start: 20110426, end: 20110630

REACTIONS (2)
  - DYSPNOEA [None]
  - FATIGUE [None]
